FAERS Safety Report 8578488-4 (Version None)
Quarter: 2012Q3

REPORT INFORMATION
  Report Type: 
  Country: None (occurrence: None)
  Receive Date: 20120808
  Receipt Date: 20120731
  Transmission Date: 20120928
  Serious: Yes (Other)
  Sender: FDA-Public Use
  Company Number: US-US-EMD SERONO, INC.-7151677

PATIENT
  Sex: Female

DRUGS (2)
  1. FIORICET [Concomitant]
     Indication: MIGRAINE
  2. REBIF [Suspect]
     Indication: MULTIPLE SCLEROSIS
     Route: 058
     Dates: start: 20100827

REACTIONS (9)
  - ROAD TRAFFIC ACCIDENT [None]
  - DRY SKIN [None]
  - INJECTION SITE SWELLING [None]
  - INJECTION SITE PRURITUS [None]
  - INJECTION SITE ERYTHEMA [None]
  - INTERVERTEBRAL DISC PROTRUSION [None]
  - INJECTION SITE EXFOLIATION [None]
  - INJECTION SITE WARMTH [None]
  - INFLUENZA LIKE ILLNESS [None]
